FAERS Safety Report 24824953 (Version 3)
Quarter: 2025Q3

REPORT INFORMATION
  Report Type: Spontaneous
  Country: US (occurrence: US)
  Receive Date: 20250109
  Receipt Date: 20250803
  Transmission Date: 20251020
  Serious: Yes (Other)
  Sender: ALEXION PHARMACEUTICALS
  Company Number: US-AstraZeneca-CH-00780552AP

PATIENT
  Sex: Male

DRUGS (1)
  1. BREZTRI [Suspect]
     Active Substance: BUDESONIDE\FORMOTEROL\GLYCOPYRROLATE
     Route: 065

REACTIONS (6)
  - Chronic obstructive pulmonary disease [Unknown]
  - Device use issue [Unknown]
  - Device delivery system issue [Not Recovered/Not Resolved]
  - Wrong technique in device usage process [Unknown]
  - Device occlusion [Unknown]
  - Wrong technique in product usage process [Unknown]
